FAERS Safety Report 6793124-5 (Version None)
Quarter: 2010Q2

REPORT INFORMATION
  Report Type: 
  Country: None (occurrence: None)
  Receive Date: 20100624
  Receipt Date: 20090715
  Transmission Date: 20101027
  Serious: Yes (Other)
  Sender: FDA-Public Use
  Company Number: US-MYLANLABS-2009S1009067

PATIENT
  Age: 25 Year
  Sex: Male
  Weight: 92.53 kg

DRUGS (3)
  1. CLOZAPINE [Suspect]
     Indication: SCHIZOAFFECTIVE DISORDER
     Route: 048
     Dates: start: 20080814, end: 20090522
  2. CLOZAPINE [Suspect]
     Route: 048
     Dates: start: 20090531
  3. TOPAMAX [Concomitant]
     Dosage: 100MG QAM, 200MG HS
     Route: 048

REACTIONS (2)
  - GRANULOCYTOPENIA [None]
  - LEUKOPENIA [None]
